FAERS Safety Report 25242934 (Version 1)
Quarter: 2025Q2

REPORT INFORMATION
  Report Type: Spontaneous
  Country: US (occurrence: US)
  Receive Date: 20250428
  Receipt Date: 20250428
  Transmission Date: 20250716
  Serious: No
  Sender: AMGEN
  Company Number: US-AMGEN-USASP2025077160

PATIENT
  Age: 47 Year
  Sex: Female

DRUGS (2)
  1. PREDNISONE [Suspect]
     Active Substance: PREDNISONE
     Indication: Gastritis
     Route: 065
  2. SUCRALFATE [Concomitant]
     Active Substance: SUCRALFATE

REACTIONS (3)
  - Drug effective for unapproved indication [Recovered/Resolved]
  - Hypophagia [Recovered/Resolved]
  - Off label use [Unknown]
